FAERS Safety Report 7583597-2 (Version None)
Quarter: 2011Q2

REPORT INFORMATION
  Report Type: 
  Country: None (occurrence: None)
  Receive Date: 20110630
  Receipt Date: 20110607
  Transmission Date: 20111010
  Serious: Yes (Hospitalization)
  Sender: FDA-Public Use
  Company Number: A0931188A

PATIENT
  Sex: Male
  Weight: 84.5 kg

DRUGS (9)
  1. SEREVENT [Suspect]
     Indication: ASTHMA
     Dosage: 1PUFF TWICE PER DAY
     Route: 055
     Dates: end: 20060314
  2. AZMACORT [Concomitant]
  3. FORADIL [Concomitant]
     Dates: start: 20060314
  4. SINGULAIR [Concomitant]
  5. FLONASE [Concomitant]
  6. LORAZEPAM [Concomitant]
  7. ALBUTEROL SULFATE AUTOHALER [Concomitant]
  8. PRILOSEC [Concomitant]
  9. CLARITIN [Concomitant]

REACTIONS (2)
  - ACUTE RESPIRATORY FAILURE [None]
  - ASTHMA [None]
